FAERS Safety Report 18372126 (Version 1)
Quarter: 2020Q4

REPORT INFORMATION
  Report Type: Spontaneous
  Country: GB (occurrence: GB)
  Receive Date: 20201012
  Receipt Date: 20201012
  Transmission Date: 20210114
  Serious: Yes (Other)
  Sender: FDA-Public Use
  Company Number: GB-NOVOPROD-758116

PATIENT
  Age: 882 Month
  Sex: Male
  Weight: 100.7 kg

DRUGS (3)
  1. NOVORAPID [Suspect]
     Active Substance: INSULIN ASPART
     Indication: TYPE 2 DIABETES MELLITUS
     Dosage: 50 IU, QD(20 IU AT LUNCH HAS 10 IU AND 20 IU IN EVENING)
     Route: 065
  2. ASPIRIN [ACETYLSALICYLIC ACID] [Concomitant]
     Active Substance: ASPIRIN
     Indication: BLOOD PRESSURE ABNORMAL
     Dosage: UNK
     Route: 065
  3. ISOPHANE INSULIN [Suspect]
     Active Substance: INSULIN NOS
     Indication: TYPE 2 DIABETES MELLITUS
     Dosage: 30 IU, QD(30 UNITS OF INSULATARD IN THE MORNING)
     Route: 065

REACTIONS (3)
  - Weight decreased [Unknown]
  - Heart valve operation [Unknown]
  - Coronary artery bypass [Unknown]
